FAERS Safety Report 7373925-5 (Version None)
Quarter: 2011Q1

REPORT INFORMATION
  Report Type: 
  Country: None (occurrence: None)
  Receive Date: 20110325
  Receipt Date: 20110321
  Transmission Date: 20110831
  Serious: No
  Sender: FDA-Public Use
  Company Number: US-PFIZER INC-2011062205

PATIENT
  Sex: Male
  Weight: 99.773 kg

DRUGS (1)
  1. ADVIL CONGESTION RELIEF [Suspect]
     Indication: SINUS DISORDER
     Dosage: 200 MG, 2X/DAY
     Route: 048
     Dates: start: 20110301, end: 20110316

REACTIONS (1)
  - DRUG INEFFECTIVE [None]
